FAERS Safety Report 14547825 (Version 1)
Quarter: 2018Q1

REPORT INFORMATION
  Report Type: Spontaneous
  Country: US (occurrence: US)
  Receive Date: 20180219
  Receipt Date: 20180219
  Transmission Date: 20180509
  Serious: No
  Sender: FDA-Public Use
  Company Number: US-GLAXOSMITHKLINE-US2018024065

PATIENT
  Age: 71 Year
  Sex: Female

DRUGS (4)
  1. NICORETTE FRUIT CHILL [Suspect]
     Active Substance: NICOTINE
     Indication: SMOKING CESSATION THERAPY
     Dosage: UNK, CHEWED 2-3 PIECES A DAY
  2. NICORETTE MINT [Suspect]
     Active Substance: NICOTINE
     Indication: SMOKING CESSATION THERAPY
     Dosage: 2 MG, UNK,CHEWED 2-3 PIECES A DAY
  3. NICORETTE MINT [Suspect]
     Active Substance: NICOTINE
     Indication: SMOKING CESSATION THERAPY
     Dosage: 4 MG, UNK, CHEWED 2-3 PIECES A DAY
  4. NICORETTE FRUIT CHILL [Suspect]
     Active Substance: NICOTINE
     Indication: SMOKING CESSATION THERAPY
     Dosage: , CHEWED 2-3 PIECES A DAY4 MG, UNK

REACTIONS (2)
  - Underdose [Unknown]
  - Nicotine dependence [Not Recovered/Not Resolved]
